APPROVED DRUG PRODUCT: FENOFIBRATE
Active Ingredient: FENOFIBRATE
Strength: 145MG
Dosage Form/Route: TABLET;ORAL
Application: A209951 | Product #002 | TE Code: AB
Applicant: AMNEAL PHARMACEUTICALS LLC
Approved: Feb 9, 2018 | RLD: No | RS: No | Type: RX